FAERS Safety Report 10617668 (Version 1)
Quarter: 2014Q4

REPORT INFORMATION
  Report Type: Spontaneous
  Country: GB (occurrence: GB)
  Receive Date: 20141201
  Receipt Date: 20141201
  Transmission Date: 20150529
  Serious: Yes (Other)
  Sender: FDA-Public Use
  Company Number: GB-ACTAVIS-2014-25713

PATIENT
  Age: 27 Year
  Sex: Female
  Weight: 122 kg

DRUGS (4)
  1. QUETIAPINE (UNKNOWN) [Suspect]
     Active Substance: QUETIAPINE
     Indication: BIPOLAR DISORDER
     Dosage: 300 MG, UNKNOWN
     Route: 048
     Dates: start: 20131220
  2. CERAZETTE                          /00754001/ [Concomitant]
     Indication: PRODUCT USED FOR UNKNOWN INDICATION
     Dosage: UNK
     Route: 065
  3. CARBAMAZEPINE (UNKNOWN) [Suspect]
     Active Substance: CARBAMAZEPINE
     Indication: BIPOLAR DISORDER
     Dosage: 400 MG, UNKNOWN
     Route: 048
  4. SERTRALINE [Concomitant]
     Active Substance: SERTRALINE HYDROCHLORIDE
     Indication: PRODUCT USED FOR UNKNOWN INDICATION
     Dosage: UNK
     Route: 065

REACTIONS (2)
  - Somnolence [Not Recovered/Not Resolved]
  - Dry eye [Recovered/Resolved with Sequelae]

NARRATIVE: CASE EVENT DATE: 20131220
